FAERS Safety Report 12309543 (Version 1)
Quarter: 2016Q2

REPORT INFORMATION
  Report Type: Spontaneous
  Country: US (occurrence: None)
  Receive Date: 20160426
  Receipt Date: 20160426
  Transmission Date: 20160815
  Serious: No
  Sender: FDA-Public Use
  Company Number: None

PATIENT
  Age: 68 Year
  Sex: Male
  Weight: 68.95 kg

DRUGS (12)
  1. GLUCOSAMINE + CONDROITIN [Concomitant]
  2. CLARITIN [Concomitant]
     Active Substance: LORATADINE
  3. MIRALAX [Concomitant]
     Active Substance: POLYETHYLENE GLYCOL 3350
  4. MULTI-VITAMIN [Concomitant]
     Active Substance: .ALPHA.-TOCOPHEROL ACETATE, DL-\ASCORBIC ACID\CYANOCOBALAMIN\FLUORIDE ION\FOLIC ACID\NIACIN\PYRIDOXINE\RIBOFLAVIN\THIAMINE\VITAMIN A\VITAMIN D
  5. LECITHIN [Concomitant]
     Active Substance: LECITHIN
  6. COQ10 [Concomitant]
     Active Substance: UBIDECARENONE
  7. ZYRTEC [Concomitant]
     Active Substance: CETIRIZINE HYDROCHLORIDE
  8. ALGAE-CAL [Concomitant]
  9. FISH OIL [Concomitant]
     Active Substance: FISH OIL
  10. VITAMIN B COMPLEX [Concomitant]
     Active Substance: CYANOCOBALAMIN\DEXPANTHENOL\NIACINAMIDE\PYRIDOXINE HYDROCHLORIDE\RIBOFLAVIN 5^-PHOSPHATE SODIUM\THIAMINE HYDROCHLORIDE\VITAMIN B COMPLEX
  11. STRONTIUM [Concomitant]
     Active Substance: STRONTIUM
  12. FLUCONAZOLE 100MG TAB GLE, 100 MG [Suspect]
     Active Substance: FLUCONAZOLE
     Indication: ANAL CANDIDIASIS
     Dosage: IN THE MORNING
     Route: 048
     Dates: start: 20160421, end: 20160423

REACTIONS (4)
  - Nausea [None]
  - Vomiting [None]
  - Abdominal distension [None]
  - Abdominal pain [None]

NARRATIVE: CASE EVENT DATE: 20160423
